FAERS Safety Report 4687625-3 (Version None)
Quarter: 2005Q2

REPORT INFORMATION
  Report Type: 
  Country: None (occurrence: None)
  Receive Date: 20050610
  Receipt Date: 20050530
  Transmission Date: 20051028
  Serious: Yes (Other)
  Sender: FDA-Public Use
  Company Number: HQWYE025531MAY05

PATIENT
  Age: 53 Year
  Sex: Male
  Weight: 87 kg

DRUGS (1)
  1. ENBREL [Suspect]
     Indication: DRUG USE FOR UNKNOWN INDICATION
     Route: 058
     Dates: start: 20001101, end: 20050509

REACTIONS (5)
  - BACK PAIN [None]
  - CANDIDIASIS [None]
  - DYSPNOEA [None]
  - HYPERHIDROSIS [None]
  - LUNG NEOPLASM [None]
